FAERS Safety Report 16712175 (Version 1)
Quarter: 2019Q3

REPORT INFORMATION
  Report Type: Spontaneous
  Country: RU (occurrence: RU)
  Receive Date: 20190816
  Receipt Date: 20190816
  Transmission Date: 20191004
  Serious: Yes (Death)
  Sender: FDA-Public Use
  Company Number: PHHY2019RU191605

PATIENT
  Age: 62 Year
  Sex: Male

DRUGS (2)
  1. AZARGA [Suspect]
     Active Substance: BRINZOLAMIDE\TIMOLOL MALEATE
     Indication: GLAUCOMA
     Dosage: 2 GTT (BOTH EYES)
     Route: 057
     Dates: start: 20190801
  2. AZARGA [Suspect]
     Active Substance: BRINZOLAMIDE\TIMOLOL MALEATE
     Dosage: 1 GTT (BOTH EYES)
     Route: 057
     Dates: start: 20190801

REACTIONS (2)
  - Sudden death [Fatal]
  - Asphyxia [Fatal]

NARRATIVE: CASE EVENT DATE: 20190801
